FAERS Safety Report 7066458-7 (Version None)
Quarter: 2010Q4

REPORT INFORMATION
  Report Type: 
  Country: None (occurrence: None)
  Receive Date: 20101027
  Receipt Date: 20100112
  Transmission Date: 20110411
  Serious: No
  Sender: FDA-Public Use
  Company Number: US-WYE-H12750209

PATIENT
  Sex: Female
  Weight: 52.21 kg

DRUGS (6)
  1. PREMPRO [Suspect]
     Indication: HORMONE THERAPY
     Route: 048
     Dates: start: 20090701
  2. BONIVA [Concomitant]
  3. ACETYLSALICYLIC ACID [Concomitant]
  4. ERGOCALCIFEROL [Concomitant]
  5. CALCIUM [Concomitant]
  6. NISOREX [Concomitant]

REACTIONS (1)
  - PAIN IN EXTREMITY [None]
